FAERS Safety Report 5140471-9 (Version None)
Quarter: 2006Q4

REPORT INFORMATION
  Report Type: 
  Country: None (occurrence: None)
  Receive Date: 20061025
  Receipt Date: 20061012
  Transmission Date: 20070319
  Serious: Yes (Life-Threatening, Hospitalization)
  Sender: FDA-Public Use
  Company Number: A-CH2006-13225

PATIENT
  Age: 50 Year
  Sex: Female

DRUGS (7)
  1. TRACLEER [Suspect]
     Indication: HEART DISEASE CONGENITAL
     Dosage: SEE IMAGE
     Route: 048
     Dates: start: 20051028, end: 20051101
  2. TRACLEER [Suspect]
     Indication: HEART DISEASE CONGENITAL
     Dosage: SEE IMAGE
     Route: 048
     Dates: start: 20051101, end: 20061002
  3. ASACOL [Concomitant]
  4. ASPIRIN [Concomitant]
  5. LASIX [Concomitant]
  6. NORVASC [Concomitant]
  7. CITALOPRAM HYDROBROMIDE [Concomitant]

REACTIONS (1)
  - HAEMOLYSIS [None]
